FAERS Safety Report 5787570-6 (Version None)
Quarter: 2008Q2

REPORT INFORMATION
  Report Type: 
  Country: None (occurrence: None)
  Receive Date: 20080625
  Receipt Date: 20071101
  Transmission Date: 20081010
  Serious: No
  Sender: FDA-Public Use
  Company Number: US-ASTRAZENECA-2007UW25370

PATIENT
  Age: 65 Year
  Sex: Female
  Weight: 62.6 kg

DRUGS (5)
  1. PULMICORT RESPULES [Suspect]
     Indication: EMPHYSEMA
     Route: 055
     Dates: start: 20060101
  2. ALBUTEROL [Suspect]
  3. ZETIA [Concomitant]
  4. ZYRTEC [Concomitant]
  5. ASPIRIN [Concomitant]

REACTIONS (3)
  - ABDOMINAL PAIN UPPER [None]
  - FLATULENCE [None]
  - INFLAMMATION [None]
